FAERS Safety Report 8419859-6 (Version None)
Quarter: 2012Q2

REPORT INFORMATION
  Report Type: 
  Country: None (occurrence: None)
  Receive Date: 20120607
  Receipt Date: 20120531
  Transmission Date: 20120825
  Serious: Yes (Hospitalization)
  Sender: FDA-Public Use
  Company Number: CH-ABBOTT-12P-151-0941157-00

PATIENT
  Age: 35 Year
  Sex: Female

DRUGS (5)
  1. REYATAZ [Interacting]
     Indication: HIV INFECTION
     Dates: start: 20120216
  2. MIDAZOLAM [Interacting]
     Indication: POLYSUBSTANCE DEPENDENCE
     Route: 048
  3. TRUVADA [Concomitant]
     Indication: HIV INFECTION
     Route: 048
     Dates: start: 20120216
  4. NORVIR [Suspect]
     Indication: HIV INFECTION
     Route: 048
     Dates: start: 20120216
  5. METHADONE HCL [Concomitant]
     Indication: POLYSUBSTANCE DEPENDENCE

REACTIONS (3)
  - SOMNOLENCE [None]
  - DRUG INTERACTION [None]
  - CONFUSIONAL STATE [None]
